FAERS Safety Report 6347067-1 (Version None)
Quarter: 2009Q3

REPORT INFORMATION
  Report Type: 
  Country: None (occurrence: None)
  Receive Date: 20090910
  Receipt Date: 20090909
  Transmission Date: 20100115
  Serious: Yes (Hospitalization)
  Sender: FDA-Public Use
  Company Number: ES-PFIZER INC-2009172406

PATIENT
  Age: 68 Year

DRUGS (6)
  1. ATORVASTATIN CALCIUM [Suspect]
     Indication: BLOOD CHOLESTEROL INCREASED
     Dosage: 10 MG, 1X/DAY
     Route: 048
     Dates: start: 20070725, end: 20090108
  2. PARACETAMOL [Concomitant]
     Dosage: UNK
  3. METAMIZOLE [Concomitant]
     Dosage: UNK
  4. PAROXETINE [Concomitant]
     Dosage: 20 MG, UNK
     Route: 048
     Dates: start: 20071122
  5. RENITEC [Concomitant]
     Dosage: 20 MG, UNK
     Route: 048
     Dates: start: 20060331, end: 20070725
  6. OMEPRAZOL [Concomitant]
     Dosage: 20 MG, UNK
     Route: 048
     Dates: start: 20081226

REACTIONS (2)
  - MUSCULAR DYSTROPHY [None]
  - RHABDOMYOLYSIS [None]
